FAERS Safety Report 6182299-7 (Version None)
Quarter: 2009Q2

REPORT INFORMATION
  Report Type: 
  Country: None (occurrence: None)
  Receive Date: 20090505
  Receipt Date: 20090424
  Transmission Date: 20091009
  Serious: Yes (Life-Threatening, Hospitalization)
  Sender: FDA-Public Use
  Company Number: RENA-1000387

PATIENT
  Age: 65 Year
  Sex: Female
  Weight: 50 kg

DRUGS (12)
  1. RENAGEL [Suspect]
     Indication: HYPERPHOSPHATAEMIA
     Dosage: 0.5 G, TID, ORAL
     Route: 048
     Dates: start: 20000101, end: 20090122
  2. KAYEXALATE [Suspect]
     Indication: DRUG USE FOR UNKNOWN INDICATION
     Dosage: 5 G, TID, ORAL
     Route: 048
     Dates: start: 20000101, end: 20090122
  3. CALTAN (CALCIUM CARBONATE) UNKNOWN [Suspect]
     Indication: DRUG USE FOR UNKNOWN INDICATION
     Dates: start: 20000101, end: 20090122
  4. METHYCOBAL (MECOBALAMIN) [Concomitant]
  5. NEUROTROPIN (ORGAN LYSATE, STANDARDIZED) [Concomitant]
  6. SELARA (EPLERENONE) [Concomitant]
  7. ALDOMET (METHYLDOPATE HYDROCHLORIDE) [Concomitant]
  8. ROCALTROL [Concomitant]
  9. RISUMIC (AMEZINIUM METILSULFATE) [Concomitant]
  10. NICARDIPINE HYDROCHLORIDE [Concomitant]
  11. NORVASC [Concomitant]
  12. DIOVAN [Concomitant]

REACTIONS (9)
  - CEREBRAL HAEMORRHAGE [None]
  - DUODENAL ULCER [None]
  - GASTRIC ULCER [None]
  - HAEMODIALYSIS [None]
  - HAEMOGLOBIN DECREASED [None]
  - PLATELET COUNT DECREASED [None]
  - PLATELET COUNT INCREASED [None]
  - RECTAL ULCER HAEMORRHAGE [None]
  - ULCER HAEMORRHAGE [None]
